FAERS Safety Report 22284172 (Version 1)
Quarter: 2023Q2

REPORT INFORMATION
  Report Type: Spontaneous
  Country: BR (occurrence: BR)
  Receive Date: 20230504
  Receipt Date: 20230504
  Transmission Date: 20230722
  Serious: Yes (Other)
  Sender: FDA-Public Use
  Company Number: BR-PFIZER INC-202300173533

PATIENT
  Age: 50 Year
  Sex: Male

DRUGS (1)
  1. CAVERJECT [Suspect]
     Active Substance: ALPROSTADIL
     Dosage: UNK

REACTIONS (2)
  - Genital pain [Not Recovered/Not Resolved]
  - Erection increased [Not Recovered/Not Resolved]

NARRATIVE: CASE EVENT DATE: 20230401
